FAERS Safety Report 17294080 (Version 2)
Quarter: 2023Q1

REPORT INFORMATION
  Report Type: Report from Study
  Country: US (occurrence: US)
  Receive Date: 20200121
  Receipt Date: 20230209
  Transmission Date: 20230417
  Serious: Yes (Death, Other)
  Sender: FDA-Public Use
  Company Number: US-SHIRE-US202002213

PATIENT
  Age: 45 Year
  Sex: Male

DRUGS (2)
  1. HUMAN IMMUNOGLOBULIN G [Suspect]
     Active Substance: HUMAN IMMUNOGLOBULIN G
     Indication: Primary immunodeficiency syndrome
     Dosage: UNK UNK, Q4WEEKS
     Route: 042
     Dates: start: 20191101
  2. HUMAN IMMUNOGLOBULIN G [Suspect]
     Active Substance: HUMAN IMMUNOGLOBULIN G
     Indication: Multifocal motor neuropathy
     Dosage: UNK
     Route: 042
     Dates: start: 20230108, end: 20230207

REACTIONS (2)
  - Death [Fatal]
  - Malaise [Recovered/Resolved]

NARRATIVE: CASE EVENT DATE: 20191101
